FAERS Safety Report 15148825 (Version 3)
Quarter: 2020Q2

REPORT INFORMATION
  Report Type: Spontaneous
  Country: HU (occurrence: HU)
  Receive Date: 20180716
  Receipt Date: 20200430
  Transmission Date: 20200713
  Serious: Yes (Death, Life-Threatening, Hospitalization)
  Sender: FDA-Public Use
  Company Number: HU-CELGENEUS-HUN-20180701110

PATIENT
  Age: 73 Year
  Sex: Female
  Weight: 69 kg

DRUGS (13)
  1. ALKALIGEN [Concomitant]
     Indication: PROPHYLAXIS
     Route: 041
     Dates: start: 20180528, end: 20180601
  2. VENETOCLAX. [Concomitant]
     Active Substance: VENETOCLAX
     Indication: ACUTE MYELOID LEUKAEMIA
     Dosage: 100 MILLIGRAM
     Route: 048
     Dates: start: 20180529, end: 20180529
  3. COSOPT UNO [Concomitant]
     Indication: GLAUCOMA
     Dosage: 3 DROPS
     Route: 061
     Dates: start: 2002, end: 20180703
  4. VENETOCLAX. [Concomitant]
     Active Substance: VENETOCLAX
     Dosage: 400 MILLIGRAM
     Route: 048
     Dates: start: 20180531, end: 20180702
  5. VENETOCLAX. [Concomitant]
     Active Substance: VENETOCLAX
     Dosage: 200 MILLIGRAM
     Route: 048
     Dates: start: 20180530, end: 20180530
  6. BISOPROLOL [Concomitant]
     Active Substance: BISOPROLOL
     Indication: HYPERTENSION
     Dosage: 2.5 MILLIGRAM
     Route: 048
     Dates: start: 200001, end: 20180702
  7. OCUTEARS [Concomitant]
     Indication: GLAUCOMA
     Dosage: 3 DROPS
     Route: 061
     Dates: start: 2002, end: 20180703
  8. ALLOPURINOL. [Concomitant]
     Active Substance: ALLOPURINOL
     Indication: PRODUCT USED FOR UNKNOWN INDICATION
     Route: 065
     Dates: start: 20180528, end: 20180601
  9. SODIUM CHLORIDE. [Concomitant]
     Active Substance: SODIUM CHLORIDE
     Indication: PROPHYLAXIS
     Route: 041
     Dates: start: 20180528, end: 20180601
  10. COVEREX AS KOMB [Concomitant]
     Indication: HYPERTENSION
     Dosage: 6.25 MILLIGRAM
     Route: 048
     Dates: start: 200001, end: 20180702
  11. COVEREX AS [Concomitant]
     Active Substance: PERINDOPRIL ARGININE
     Indication: HYPERTENSION
     Dosage: 6.25 MILLIGRAM
     Route: 048
     Dates: start: 200001, end: 20180702
  12. AZACITIDINE. [Suspect]
     Active Substance: AZACITIDINE
     Indication: ACUTE MYELOID LEUKAEMIA
     Dosage: 75 MILLIGRAM/SQ. METER
     Route: 058
     Dates: start: 20180529, end: 20180702
  13. DALACIN [Concomitant]
     Active Substance: CLINDAMYCIN
     Indication: INFECTION
     Dosage: 300 MILLIGRAM
     Route: 061
     Dates: start: 20180625, end: 20180627

REACTIONS (2)
  - Haemorrhagic stroke [Fatal]
  - Febrile neutropenia [Unknown]

NARRATIVE: CASE EVENT DATE: 20180627
